FAERS Safety Report 7394855-9 (Version None)
Quarter: 2011Q2

REPORT INFORMATION
  Report Type: 
  Country: None (occurrence: None)
  Receive Date: 20110405
  Receipt Date: 20110309
  Transmission Date: 20111010
  Serious: Yes (Hospitalization)
  Sender: FDA-Public Use
  Company Number: A0918591A

PATIENT
  Age: 65 Year
  Sex: Female
  Weight: 64.6 kg

DRUGS (1)
  1. LAPATINIB [Suspect]
     Dosage: 3000MG PER DAY
     Route: 048
     Dates: start: 20110203, end: 20110306

REACTIONS (2)
  - TREMOR [None]
  - APHASIA [None]
